FAERS Safety Report 20575380 (Version 1)
Quarter: 2022Q1

REPORT INFORMATION
  Report Type: Spontaneous
  Country: AR (occurrence: None)
  Receive Date: 20220310
  Receipt Date: 20220310
  Transmission Date: 20220423
  Serious: Yes (Hospitalization)
  Sender: FDA-Public Use
  Company Number: US-Purple Biotech Ltd-PBL-2022-000007

PATIENT

DRUGS (1)
  1. AMLODIPINE [Suspect]
     Active Substance: AMLODIPINE BESYLATE
     Route: 048

REACTIONS (3)
  - Suicide attempt [Recovering/Resolving]
  - Overdose [Recovering/Resolving]
  - Haemodynamic instability [Recovering/Resolving]
